FAERS Safety Report 7250913-0 (Version None)
Quarter: 2011Q1

REPORT INFORMATION
  Report Type: 
  Country: None (occurrence: None)
  Receive Date: 20110128
  Receipt Date: 20110119
  Transmission Date: 20110831
  Serious: Yes (Hospitalization)
  Sender: FDA-Public Use
  Company Number: A0908746A

PATIENT
  Sex: Female

DRUGS (1)
  1. PAXIL [Suspect]
     Indication: DEPRESSION
     Route: 048

REACTIONS (5)
  - VIOLENCE-RELATED SYMPTOM [None]
  - SUICIDAL IDEATION [None]
  - NIGHTMARE [None]
  - PSYCHOTIC DISORDER [None]
  - ADVERSE DRUG REACTION [None]
